FAERS Safety Report 23216238 (Version 1)
Quarter: 2023Q4

REPORT INFORMATION
  Report Type: Spontaneous
  Country: US (occurrence: US)
  Receive Date: 20231122
  Receipt Date: 20231122
  Transmission Date: 20240110
  Serious: No
  Sender: FDA-Public Use
  Company Number: US-AUROBINDO-AUR-APL-2023-052228

PATIENT
  Age: 76 Year
  Sex: Female
  Weight: 113 kg

DRUGS (4)
  1. HYDROCHLOROTHIAZIDE\LOSARTAN POTASSIUM [Suspect]
     Active Substance: HYDROCHLOROTHIAZIDE\LOSARTAN POTASSIUM
     Indication: Hypertension
     Dosage: ONCE A DAY (90 DAY SUPPLY IN A SEALED CONTAINER RECEIVED IN THE MONTH OF APRIL)
     Route: 065
     Dates: start: 20230615
  2. HYDROCHLOROTHIAZIDE\LOSARTAN POTASSIUM [Suspect]
     Active Substance: HYDROCHLOROTHIAZIDE\LOSARTAN POTASSIUM
     Dosage: ONCE A DAY (ANOTHER BOTTLE OF MEDICATION IN THE MONTH OF JUNE AS A 90 DAY SUPPLY)
     Route: 065
     Dates: start: 20230615
  3. SERTRALINE [Concomitant]
     Active Substance: SERTRALINE HYDROCHLORIDE
     Indication: Product used for unknown indication
     Dosage: UNK
     Route: 065
  4. VITAMIN D [Concomitant]
     Active Substance: VITAMIN D NOS
     Indication: Product used for unknown indication
     Dosage: ONCE A WEEK
     Route: 065

REACTIONS (5)
  - Product dose omission issue [Unknown]
  - Product use issue [Unknown]
  - Product dispensing error [Unknown]
  - Product label issue [Unknown]
  - Product packaging quantity issue [Unknown]
